FAERS Safety Report 6549324-2 (Version None)
Quarter: 2010Q1

REPORT INFORMATION
  Report Type: 
  Country: None (occurrence: None)
  Receive Date: 20100125
  Receipt Date: 20100112
  Transmission Date: 20100710
  Serious: Yes (Other)
  Sender: FDA-Public Use
  Company Number: PHHY2010AU01612

PATIENT
  Sex: Male

DRUGS (1)
  1. CLOZARIL [Suspect]
     Dosage: 300MG, UNK
     Route: 048
     Dates: start: 20091214, end: 20100112

REACTIONS (2)
  - CARDIAC FUNCTION TEST ABNORMAL [None]
  - TROPONIN INCREASED [None]
